FAERS Safety Report 17855426 (Version 2)
Quarter: 2020Q2

REPORT INFORMATION
  Report Type: Spontaneous
  Country: CA (occurrence: CA)
  Receive Date: 20200603
  Receipt Date: 20200610
  Transmission Date: 20200714
  Serious: Yes (Other)
  Sender: FDA-Public Use
  Company Number: CA-PFIZER INC-2020214731

PATIENT
  Age: 25 Year
  Sex: Female

DRUGS (2)
  1. METHOTREXATE SODIUM. [Suspect]
     Active Substance: METHOTREXATE SODIUM
     Indication: CROHN^S DISEASE
     Dosage: UNK
     Route: 048
     Dates: end: 201807
  2. REMICADE [Suspect]
     Active Substance: INFLIXIMAB
     Indication: CROHN^S DISEASE
     Dosage: UNK EVERY 6 WEEKS
     Route: 042
     Dates: end: 201807

REACTIONS (5)
  - Product use in unapproved indication [Unknown]
  - Psoriasis [Unknown]
  - Infection [Unknown]
  - Crohn^s disease [Unknown]
  - Off label use [Unknown]
